FAERS Safety Report 5397867-X (Version None)
Quarter: 2007Q3

REPORT INFORMATION
  Report Type: 
  Country: None (occurrence: None)
  Receive Date: 20070724
  Receipt Date: 20070717
  Transmission Date: 20080115
  Serious: Yes (Death)
  Sender: FDA-Public Use
  Company Number: 163-21880-06060783

PATIENT
  Age: 80 Year
  Sex: Female

DRUGS (6)
  1. REVLIMID [Suspect]
     Indication: MYELODYSPLASTIC SYNDROME
     Dosage: 5 MG, 1 IN 1 D, ORAL
     Route: 048
     Dates: start: 20060613, end: 20060701
  2. PROCRIT [Concomitant]
  3. EXJADE [Concomitant]
  4. PREDNISONE TAB [Concomitant]
  5. CRESTOR                (ATORVASTATIN) [Concomitant]
  6. AZACITIDINE       (AZACITIDINE) [Concomitant]

REACTIONS (5)
  - ARTHRALGIA [None]
  - DISEASE PROGRESSION [None]
  - MYELODYSPLASTIC SYNDROME [None]
  - POOR PERIPHERAL CIRCULATION [None]
  - URINARY RETENTION [None]
